FAERS Safety Report 7652135-8 (Version None)
Quarter: 2011Q3

REPORT INFORMATION
  Report Type: 
  Country: None (occurrence: None)
  Receive Date: 20110803
  Receipt Date: 20110729
  Transmission Date: 20111222
  Serious: Yes (Hospitalization, Other)
  Sender: FDA-Public Use
  Company Number: DE-JNJFOC-20110702975

PATIENT
  Sex: Male
  Weight: 93 kg

DRUGS (1)
  1. IMODIUM AD [Suspect]
     Indication: DIARRHOEA
     Dosage: 2 MG 4 TIMES
     Route: 048
     Dates: start: 20100818, end: 20100820

REACTIONS (4)
  - ABDOMINAL PAIN [None]
  - CONSTIPATION [None]
  - POISONING [None]
  - MUSCLE SPASMS [None]
